FAERS Safety Report 9992652 (Version 1)
Quarter: 2014Q1

REPORT INFORMATION
  Report Type: Spontaneous
  Country: US (occurrence: US)
  Receive Date: 20140310
  Receipt Date: 20140310
  Transmission Date: 20141002
  Serious: No
  Sender: FDA-Public Use
  Company Number: US-PFIZER INC-2014068638

PATIENT
  Age: 72 Year
  Sex: Female
  Weight: 62.59 kg

DRUGS (4)
  1. CELEBREX [Suspect]
     Indication: NECK PAIN
     Dosage: 200 MG, DAILY
     Dates: start: 20140304
  2. CELEBREX [Suspect]
     Indication: BACK PAIN
  3. CELEBREX [Suspect]
     Indication: PAIN IN EXTREMITY
  4. FORTEO [Concomitant]
     Indication: OSTEOARTHRITIS
     Dosage: UNK

REACTIONS (3)
  - Insomnia [Unknown]
  - Middle insomnia [Unknown]
  - Increased appetite [Unknown]
